FAERS Safety Report 17805528 (Version 1)
Quarter: 2020Q2

REPORT INFORMATION
  Report Type: Spontaneous
  Country: PT (occurrence: PT)
  Receive Date: 20200519
  Receipt Date: 20200519
  Transmission Date: 20200714
  Serious: Yes (Other)
  Sender: FDA-Public Use
  Company Number: PT-009507513-2005PRT003384

PATIENT
  Age: 66 Year
  Weight: 98 kg

DRUGS (1)
  1. SEGLUROMET [Suspect]
     Active Substance: ERTUGLIFLOZIN PIDOLATE\METFORMIN HYDROCHLORIDE
     Dosage: 2 ID (LUNCH AND DINNER)
     Route: 048
     Dates: start: 20200418, end: 20200427

REACTIONS (2)
  - Ketoacidosis [Unknown]
  - Dry mouth [Unknown]

NARRATIVE: CASE EVENT DATE: 20200418
